FAERS Safety Report 14624023 (Version 1)
Quarter: 2018Q1

REPORT INFORMATION
  Report Type: Report from Study
  Country: US (occurrence: US)
  Receive Date: 20180312
  Receipt Date: 20180312
  Transmission Date: 20180509
  Serious: Yes (Other)
  Sender: FDA-Public Use
  Company Number: PHEH2011US009909

PATIENT
  Sex: Male

DRUGS (6)
  1. PREDNISONE. [Concomitant]
     Active Substance: PREDNISONE
     Indication: PRODUCT USED FOR UNKNOWN INDICATION
     Route: 065
  2. AMITRIPTYLINE [Concomitant]
     Active Substance: AMITRIPTYLINE
     Indication: PRODUCT USED FOR UNKNOWN INDICATION
     Dosage: UNK
     Route: 065
  3. ASPIRIN. [Concomitant]
     Active Substance: ASPIRIN
  4. LEVAQUIN [Concomitant]
     Active Substance: LEVOFLOXACIN
     Dosage: 1 DF, QD
  5. GLEEVEC [Suspect]
     Active Substance: IMATINIB MESYLATE
     Indication: CHRONIC MYELOID LEUKAEMIA
     Dosage: 400 MG, QD
     Route: 048
     Dates: start: 2008
  6. ZITHROMAX [Concomitant]
     Active Substance: AZITHROMYCIN DIHYDRATE
     Dosage: 250 MG, QD

REACTIONS (22)
  - Pancreatitis [Unknown]
  - Dizziness [Unknown]
  - Diarrhoea [Unknown]
  - Vomiting [Unknown]
  - Abdominal pain upper [Unknown]
  - Malaise [Unknown]
  - Nerve injury [Unknown]
  - Pain [Unknown]
  - Musculoskeletal pain [Unknown]
  - Movement disorder [Unknown]
  - Faeces discoloured [Unknown]
  - Feeling abnormal [Unknown]
  - Lipase increased [Unknown]
  - Nausea [Unknown]
  - Weight decreased [Unknown]
  - Eating disorder [Unknown]
  - Amylase increased [Unknown]
  - Muscle spasms [Unknown]
  - Sluggishness [Unknown]
  - Gastric disorder [Unknown]
  - Hunger [Unknown]
  - Abdominal pain [Unknown]

NARRATIVE: CASE EVENT DATE: 2008
